FAERS Safety Report 6748875-5 (Version None)
Quarter: 2010Q2

REPORT INFORMATION
  Report Type: 
  Country: None (occurrence: None)
  Receive Date: 20100601
  Receipt Date: 20100520
  Transmission Date: 20101027
  Serious: Yes (Death, Hospitalization)
  Sender: FDA-Public Use
  Company Number: HU-SANOFI-AVENTIS-200821780GDDC

PATIENT
  Age: 60 Year
  Sex: Male
  Weight: 78 kg

DRUGS (4)
  1. DOCETAXEL [Suspect]
     Indication: GASTRIC CANCER
     Dosage: DOSE UNIT: 75 MG/M**2
     Route: 042
     Dates: start: 20081208, end: 20081208
  2. DOCETAXEL [Suspect]
     Route: 042
     Dates: start: 20080729, end: 20080729
  3. OXALIPLATIN [Suspect]
     Indication: GASTRIC CANCER
     Route: 042
     Dates: start: 20081208, end: 20081208
  4. OXALIPLATIN [Suspect]
     Route: 042
     Dates: start: 20080729, end: 20080729

REACTIONS (4)
  - BRONCHOPNEUMONIA [None]
  - DIARRHOEA [None]
  - HYPERKALAEMIA [None]
  - HYPONATRAEMIA [None]
